FAERS Safety Report 9126898 (Version 2)
Quarter: 2013Q1

REPORT INFORMATION
  Report Type: Report from Study
  Country: CA (occurrence: CA)
  Receive Date: 20130228
  Receipt Date: 20130313
  Transmission Date: 20140127
  Serious: Yes (Hospitalization)
  Sender: FDA-Public Use
  Company Number: CA-BRISTOL-MYERS SQUIBB COMPANY-17398769

PATIENT
  Age: 67 Year
  Sex: Female
  Weight: 41 kg

DRUGS (8)
  1. CETUXIMAB [Suspect]
     Indication: HEAD AND NECK CANCER METASTATIC
     Route: 065
     Dates: start: 20130207, end: 20130207
  2. CARBOPLATIN [Suspect]
     Indication: HEAD AND NECK CANCER METASTATIC
     Dosage: 1DF:AUC5
     Route: 065
     Dates: start: 20130131, end: 20130131
  3. 5-FLUOROURACIL [Suspect]
     Indication: HEAD AND NECK CANCER METASTATIC
     Dosage: QD OVER 96 HRS
     Route: 065
     Dates: start: 20130131, end: 20130204
  4. PROPRANOLOL [Concomitant]
     Indication: MITRAL VALVE PROLAPSE
  5. OXYCODONE [Concomitant]
     Indication: PAIN
  6. LYRICA [Concomitant]
     Indication: PAIN
  7. COLACE [Concomitant]
     Indication: CONSTIPATION
     Dates: start: 20130131
  8. DIFLUCAN [Concomitant]
     Indication: CONSTIPATION

REACTIONS (4)
  - Neutropenia [Recovered/Resolved]
  - Leukopenia [Recovered/Resolved]
  - Anaemia [Recovering/Resolving]
  - Thrombocytopenia [Recovered/Resolved]
